FAERS Safety Report 7627226-8 (Version None)
Quarter: 2011Q3

REPORT INFORMATION
  Report Type: 
  Country: None (occurrence: None)
  Receive Date: 20110721
  Receipt Date: 20110707
  Transmission Date: 20111222
  Serious: Yes (Hospitalization)
  Sender: FDA-Public Use
  Company Number: PHHY2011JP47092

PATIENT
  Age: 85 Year
  Sex: Female

DRUGS (9)
  1. LOXONIN [Concomitant]
  2. RASILEZ [Suspect]
     Indication: HYPERTENSION
     Dosage: 150 MG, UNK
     Route: 048
     Dates: start: 20110419, end: 20110519
  3. CANDESARTAN CILEXETIL [Concomitant]
     Dosage: 12 MG, UNK
     Route: 048
  4. BASEN [Concomitant]
  5. ONEALFA [Concomitant]
  6. CARNACULIN [Concomitant]
     Route: 048
  7. CEFACLOR [Concomitant]
  8. MAGNESIUM SULFATE [Concomitant]
  9. AMLODIPINE [Concomitant]
     Dosage: 5 MG, UNK
     Route: 048

REACTIONS (3)
  - PYREXIA [None]
  - DIZZINESS [None]
  - TONGUE DISCOLOURATION [None]
